FAERS Safety Report 21959823 (Version 1)
Quarter: 2023Q1

REPORT INFORMATION
  Report Type: Report from Study
  Country: US (occurrence: US)
  Receive Date: 20230206
  Receipt Date: 20230206
  Transmission Date: 20230418
  Serious: No
  Sender: FDA-Public Use
  Company Number: US-INCYTE CORPORATION-2023IN000028

PATIENT

DRUGS (1)
  1. JAKAFI [Suspect]
     Active Substance: RUXOLITINIB
     Indication: Myelofibrosis
     Dosage: 15 MILLIGRAM, BID
     Route: 048
     Dates: start: 20160101, end: 20221226

REACTIONS (6)
  - Abdominal pain upper [Unknown]
  - Abdominal pain [Unknown]
  - Impatience [Unknown]
  - Nervousness [Unknown]
  - Fear [Unknown]
  - Product availability issue [Unknown]

NARRATIVE: CASE EVENT DATE: 20221227
